FAERS Safety Report 12686368 (Version 2)
Quarter: 2016Q3

REPORT INFORMATION
  Report Type: Report from Study
  Country: US (occurrence: US)
  Receive Date: 20160825
  Receipt Date: 20160829
  Transmission Date: 20161109
  Serious: Yes (Hospitalization)
  Sender: FDA-Public Use
  Company Number: US-ARIAD-2013US001214

PATIENT
  Age: 54 Year
  Sex: Male
  Weight: 59 kg

DRUGS (4)
  1. METHOTREXATE. [Concomitant]
     Active Substance: METHOTREXATE
     Dosage: UNK
  2. ICLUSIG [Suspect]
     Active Substance: PONATINIB
     Indication: ACUTE LYMPHOCYTIC LEUKAEMIA
     Dosage: 45 MG, QD
     Route: 048
     Dates: start: 201301, end: 20130214
  3. QUESTRAN [Concomitant]
     Active Substance: CHOLESTYRAMINE
     Indication: DIARRHOEA
     Dosage: UNK, QD
  4. ICLUSIG [Suspect]
     Active Substance: PONATINIB
     Dosage: UNK
     Dates: start: 20130216

REACTIONS (8)
  - Fatigue [Unknown]
  - Muscular weakness [Not Recovered/Not Resolved]
  - Leukaemia recurrent [Unknown]
  - Bacterial infection [Recovered/Resolved]
  - Diarrhoea [Recovered/Resolved]
  - Blood count abnormal [Unknown]
  - Skin disorder [Unknown]
  - Muscular weakness [Unknown]

NARRATIVE: CASE EVENT DATE: 201301
